FAERS Safety Report 11745752 (Version 2)
Quarter: 2016Q2

REPORT INFORMATION
  Report Type: Spontaneous
  Country: US (occurrence: US)
  Receive Date: 20151117
  Receipt Date: 20160405
  Transmission Date: 20160815
  Serious: Yes (Other)
  Sender: FDA-Public Use
  Company Number: US-ROXANE LABORATORIES, INC.-2015-RO-01933RO

PATIENT
  Sex: Male
  Weight: 71 kg

DRUGS (3)
  1. DEXAMETHASONE TABLETS USP, 4 MG [Suspect]
     Active Substance: DEXAMETHASONE
     Indication: POST CONCUSSION SYNDROME
     Route: 048
     Dates: start: 201311
  2. NORCO [Concomitant]
     Active Substance: ACETAMINOPHEN\HYDROCODONE BITARTRATE
     Indication: PAIN
     Route: 048
     Dates: start: 201311
  3. PRILOSEC [Concomitant]
     Active Substance: OMEPRAZOLE MAGNESIUM
     Dosage: 20 MG
     Route: 048
     Dates: start: 201311

REACTIONS (1)
  - Osteonecrosis [Unknown]
